FAERS Safety Report 19004663 (Version 22)
Quarter: 2025Q1

REPORT INFORMATION
  Report Type: Report from Study
  Country: CA (occurrence: CA)
  Receive Date: 20210312
  Receipt Date: 20250331
  Transmission Date: 20250408
  Serious: Yes (Other)
  Sender: TAKEDA
  Company Number: CA-TAKEDA-CA202013658

PATIENT
  Age: 52 Year
  Sex: Female

DRUGS (26)
  1. ICATIBANT [Suspect]
     Active Substance: ICATIBANT ACETATE
     Indication: Hereditary angioedema
  2. ICATIBANT [Suspect]
     Active Substance: ICATIBANT ACETATE
     Indication: Hereditary angioedema with normal C1 esterase inhibitor
  3. ICATIBANT [Suspect]
     Active Substance: ICATIBANT ACETATE
  4. ICATIBANT [Suspect]
     Active Substance: ICATIBANT ACETATE
  5. ICATIBANT [Suspect]
     Active Substance: ICATIBANT ACETATE
  6. ICATIBANT [Suspect]
     Active Substance: ICATIBANT ACETATE
  7. PRAMIPEXOLE [Concomitant]
     Active Substance: PRAMIPEXOLE
     Dosage: 0.25 MILLIGRAM, QD
     Dates: start: 20170530, end: 20170821
  8. ACTEMRA [Concomitant]
     Active Substance: TOCILIZUMAB
     Dosage: UNK, MONTHLY
     Dates: start: 20160801
  9. ACTEMRA [Concomitant]
     Active Substance: TOCILIZUMAB
     Dosage: UNK, Q4WEEKS
  10. ACTEMRA [Concomitant]
     Active Substance: TOCILIZUMAB
  11. LORAZEPAM [Concomitant]
     Active Substance: LORAZEPAM
  12. SIMPONI [Concomitant]
     Active Substance: GOLIMUMAB
  13. AMITRIPTYLINE [Concomitant]
     Active Substance: AMITRIPTYLINE
     Dates: start: 20150701, end: 20170530
  14. ALBUTEROL [Concomitant]
     Active Substance: ALBUTEROL
  15. SYMBICORT [Concomitant]
     Active Substance: BUDESONIDE\FORMOTEROL FUMARATE DIHYDRATE
  16. DEXILANT [Concomitant]
     Active Substance: DEXLANSOPRAZOLE
  17. ACTONEL [Concomitant]
     Active Substance: RISEDRONATE SODIUM
  18. PLAQUENIL [Concomitant]
     Active Substance: HYDROXYCHLOROQUINE SULFATE
  19. HYDROMORPHONE [Concomitant]
     Active Substance: HYDROMORPHONE
  20. TYLENOL [Concomitant]
     Active Substance: ACETAMINOPHEN
  21. CIPRALEX [Concomitant]
     Active Substance: ESCITALOPRAM OXALATE
  22. BERINERT [Concomitant]
     Active Substance: HUMAN C1-ESTERASE INHIBITOR
     Indication: Hereditary angioedema
     Dosage: 3500 MILLIGRAM, 3/WEEK
     Dates: start: 20161013
  23. BERINERT [Concomitant]
     Active Substance: HUMAN C1-ESTERASE INHIBITOR
  24. HAEGARDA [Concomitant]
     Active Substance: HUMAN C1-ESTERASE INHIBITOR
     Dosage: UNK, 2/WEEK
  25. PREDNISONE [Concomitant]
     Active Substance: PREDNISONE
  26. VITAMIN D NOS [Concomitant]
     Active Substance: CHOLECALCIFEROL\ERGOCALCIFEROL

REACTIONS (12)
  - Deafness unilateral [Recovered/Resolved]
  - Epistaxis [Unknown]
  - Contusion [Unknown]
  - Fall [Unknown]
  - Dehydration [Unknown]
  - Limb injury [Recovered/Resolved]
  - Arthropod bite [Unknown]
  - Post procedural discomfort [Recovering/Resolving]
  - Illness [Unknown]
  - Cough [Recovering/Resolving]
  - Drug ineffective [Not Recovered/Not Resolved]
  - Urinary tract infection [Not Recovered/Not Resolved]

NARRATIVE: CASE EVENT DATE: 20200528
